FAERS Safety Report 8340414-0 (Version None)
Quarter: 2012Q2

REPORT INFORMATION
  Report Type: 
  Country: None (occurrence: None)
  Receive Date: 20120507
  Receipt Date: 20120507
  Transmission Date: 20120825
  Serious: Yes (Other)
  Sender: FDA-Public Use
  Company Number: None

PATIENT
  Age: 84 Year
  Sex: Female
  Weight: 65.77 kg

DRUGS (1)
  1. TOBRAMYCIN [Suspect]
     Indication: DERMATITIS ALLERGIC
     Dosage: |DOSAGETEXT: ONE DROP||STRENGTH: 0.3% OPH SOL 5 ML||FREQ: 4 TIMES PER DAY||ROUTE: CUTANEOUS|
     Route: 047
     Dates: start: 20120430, end: 20120502

REACTIONS (4)
  - OCULAR HYPERAEMIA [None]
  - EYE PRURITUS [None]
  - DRUG HYPERSENSITIVITY [None]
  - LOCALISED OEDEMA [None]
